FAERS Safety Report 20170984 (Version 1)
Quarter: 2021Q4

REPORT INFORMATION
  Report Type: Spontaneous
  Country: US (occurrence: US)
  Receive Date: 20211210
  Receipt Date: 20211210
  Transmission Date: 20220303
  Serious: No
  Sender: FDA-Public Use
  Company Number: US-EXELIXIS-CABO-21038455

PATIENT
  Age: 52 Year
  Sex: Male

DRUGS (3)
  1. OPDIVO [Suspect]
     Active Substance: NIVOLUMAB
     Indication: Product used for unknown indication
     Dosage: UNK
     Route: 065
  2. CABOMETYX [Suspect]
     Active Substance: CABOZANTINIB S-MALATE
     Indication: Paraganglion neoplasm
     Dosage: 40 MILLIGRAM, QD
     Route: 065
     Dates: start: 202010, end: 20210309
  3. CABOMETYX [Suspect]
     Active Substance: CABOZANTINIB S-MALATE
     Dosage: 40 MILLIGRAM, QD
     Route: 065
     Dates: start: 20210315

REACTIONS (7)
  - Psoriasis [Not Recovered/Not Resolved]
  - Abdominal distension [Not Recovered/Not Resolved]
  - Nausea [Not Recovered/Not Resolved]
  - Dehydration [Unknown]
  - Abdominal pain [Recovering/Resolving]
  - Dyspepsia [Recovering/Resolving]
  - Fatigue [Not Recovered/Not Resolved]
